FAERS Safety Report 24906067 (Version 2)
Quarter: 2025Q1

REPORT INFORMATION
  Report Type: Spontaneous
  Country: US (occurrence: US)
  Receive Date: 20250130
  Receipt Date: 20250305
  Transmission Date: 20250409
  Serious: Yes (Other)
  Sender: BRISTOL-MYERS SQUIBB COMPANY
  Company Number: US-BRISTOL-MYERS SQUIBB COMPANY-2025-008820

PATIENT
  Age: 78 Year
  Sex: Female
  Weight: 82.1 kg

DRUGS (1)
  1. POMALYST [Suspect]
     Active Substance: POMALIDOMIDE
     Indication: Plasma cell myeloma
     Dosage: 3WKS ON/1 WK OFF
     Route: 048
     Dates: start: 20240601

REACTIONS (4)
  - Myelitis [Recovering/Resolving]
  - Thrombosis [Recovering/Resolving]
  - Pain [Unknown]
  - Asthenia [Unknown]
